FAERS Safety Report 7638241-2 (Version None)
Quarter: 2011Q3

REPORT INFORMATION
  Report Type: 
  Country: None (occurrence: None)
  Receive Date: 20110722
  Receipt Date: 20110722
  Transmission Date: 20111222
  Serious: Yes (Life-Threatening, Other)
  Sender: FDA-Public Use
  Company Number: None

PATIENT
  Age: 67 Year
  Sex: Female
  Weight: 90.7194 kg

DRUGS (1)
  1. TRILEPTAL [Suspect]
     Indication: BIPOLAR DISORDER
     Dosage: 150MG 300MG 1 X DAILY
     Dates: start: 20110501

REACTIONS (5)
  - DYSARTHRIA [None]
  - DIZZINESS [None]
  - MUSCULAR WEAKNESS [None]
  - HYPOAESTHESIA [None]
  - DISORIENTATION [None]
